FAERS Safety Report 11504198 (Version 1)
Quarter: 2015Q3

REPORT INFORMATION
  Report Type: Report from Study
  Country: US (occurrence: US)
  Receive Date: 20150914
  Receipt Date: 20150914
  Transmission Date: 20151125
  Serious: No
  Sender: FDA-Public Use
  Company Number: US-AMGEN-USASL2015093706

PATIENT
  Age: 34 Year
  Sex: Female

DRUGS (1)
  1. ENBREL [Suspect]
     Active Substance: ETANERCEPT
     Indication: RHEUMATOID ARTHRITIS
     Dosage: 50 MG, UNK
     Route: 065
     Dates: start: 20150730

REACTIONS (6)
  - Injection site reaction [Unknown]
  - Scab [Unknown]
  - Arthralgia [Unknown]
  - Rash [Unknown]
  - Rash papular [Unknown]
  - Scar [Unknown]

NARRATIVE: CASE EVENT DATE: 2015
